FAERS Safety Report 13959667 (Version 4)
Quarter: 2018Q3

REPORT INFORMATION
  Report Type: Spontaneous
  Country: US (occurrence: US)
  Receive Date: 20170911
  Receipt Date: 20180706
  Transmission Date: 20181010
  Serious: Yes (Hospitalization, Other)
  Sender: FDA-Public Use
  Company Number: US-DSJP-DSU-2017-136517

PATIENT

DRUGS (2)
  1. BENICAR [Suspect]
     Active Substance: OLMESARTAN MEDOXOMIL
     Dosage: 20 MG, QD
     Route: 048
     Dates: start: 20070111, end: 20160606
  2. BENICAR [Suspect]
     Active Substance: OLMESARTAN MEDOXOMIL
     Indication: HYPERTENSION
     Dosage: 40 MG, QD
     Route: 048
     Dates: start: 20070111, end: 20160606

REACTIONS (6)
  - Weight decreased [Recovered/Resolved]
  - Large intestine polyp [Unknown]
  - Gastroenteritis [Recovering/Resolving]
  - Colitis ulcerative [Not Recovered/Not Resolved]
  - Ileus [Unknown]
  - Oesophagitis [Unknown]

NARRATIVE: CASE EVENT DATE: 20070420
